FAERS Safety Report 25751959 (Version 1)
Quarter: 2025Q3

REPORT INFORMATION
  Report Type: Spontaneous
  Country: US (occurrence: None)
  Receive Date: 20250831
  Receipt Date: 20250831
  Transmission Date: 20251021
  Serious: Yes (Other)
  Sender: FDA-CTU
  Company Number: None

PATIENT
  Age: 42 Year
  Sex: Female
  Weight: 53.07 kg

DRUGS (7)
  1. MAVENCLAD [Suspect]
     Active Substance: CLADRIBINE
     Indication: Multiple sclerosis
     Dosage: FREQUENCY : DAILY;?
     Route: 048
  2. IRON [Concomitant]
     Active Substance: IRON
  3. CURCUMIN [Concomitant]
     Active Substance: CURCUMIN
  4. ALPRAZOLAM [Concomitant]
     Active Substance: ALPRAZOLAM
  5. QC Vitamin B12 [Concomitant]
  6. AVIANE [Concomitant]
     Active Substance: ETHINYL ESTRADIOL\LEVONORGESTREL
  7. SV Vitamin D3 [Concomitant]

REACTIONS (4)
  - Temperature intolerance [None]
  - Pain [None]
  - Eyelid ptosis [None]
  - Balance disorder [None]

NARRATIVE: CASE EVENT DATE: 20250830
